FAERS Safety Report 9859024 (Version 1)
Quarter: 2014Q1

REPORT INFORMATION
  Report Type: Spontaneous
  Country: US (occurrence: None)
  Receive Date: 20140129
  Receipt Date: 20140129
  Transmission Date: 20141002
  Serious: Yes (Other)
  Sender: FDA-Public Use
  Company Number: 2014-US-000656

PATIENT
  Age: 66 Year
  Sex: Female
  Weight: 124 kg

DRUGS (25)
  1. XYREM (SODIUM OXYBATE) ORAL SOLUTION, 500MG/ML [Suspect]
     Indication: NARCOLEPSY
     Dates: start: 200403, end: 2004
  2. XYREM (SODIUM OXYBATE) ORAL SOLUTION, 500MG/ML [Suspect]
     Indication: SOMNOLENCE
     Dates: start: 200403, end: 2004
  3. NAPROSYN [Suspect]
     Indication: BACK INJURY
     Route: 048
     Dates: start: 201312, end: 201401
  4. FLEXERIL [Suspect]
     Indication: BACK INJURY
     Route: 048
     Dates: start: 201312, end: 201401
  5. PANTOPRAZOLE [Suspect]
     Indication: PRODUCT USED FOR UNKNOWN INDICATION
     Route: 048
     Dates: end: 201401
  6. ATORVASTATIN CALCIUM (ATORVASTATIN CALCIUM) [Suspect]
     Indication: PRODUCT USED FOR UNKNOWN INDICATION
     Route: 048
     Dates: end: 201401
  7. SYNTHROID(LEVOTHYROXINE SODIUM) [Concomitant]
  8. SYNTHROID (LEVOTHYROXINE SODIUM) [Concomitant]
  9. ASPIRIN (ACETYLSALICYLIC ACID) [Concomitant]
  10. PLAVIX (CLOPIDOGREL BISULFATE) (CLOPIDOGREL BISULFATE) [Concomitant]
  11. CLIMARA (ESTRADIOL) [Concomitant]
  12. TOPROL (METOPROLOL SUCCINATE) [Concomitant]
  13. FLUCONAZOLE (FLUCONAZOLE) [Concomitant]
  14. FUROSEMIDE (FUROSEMIDE) [Concomitant]
  15. IPRATROPIUM (IPRATROPIUM BROMIDE) [Concomitant]
  16. REGLAN (METOCLOPRAMIDE HYDROCHLORIDE) [Concomitant]
  17. PRIMIDONE (PRIMIDONE) [Concomitant]
  18. POTASSIUM CHLORIDE (POTASSIUM CHLORIDE) [Concomitant]
  19. PRAMOSONE (HYDROCORTISONE ACETATE, PRAMOCAINE HYDROCHLORIDE) [Concomitant]
  20. LORAZEPAM (LORAZEPAM) [Concomitant]
  21. NORDITROPIN (SOMATROPIN) [Concomitant]
  22. CYMBALTA [Concomitant]
  23. ACETAZOLAMIDE SODIUM (ACETAZOLAMIDE SODIUM) [Concomitant]
  24. BOTOX (BOTULINUM TOXIN TYPE A) [Concomitant]
  25. PROMETHAZINE HYDROCHLORIDE (PROMETHAZINE HYDROCHLORIDE) [Concomitant]

REACTIONS (9)
  - Renal failure acute [None]
  - Renal failure chronic [None]
  - Hepatic enzyme increased [None]
  - Back injury [None]
  - Fall [None]
  - Sinusitis [None]
  - Weight increased [None]
  - Constipation [None]
  - Abdominal pain upper [None]
